FAERS Safety Report 12211422 (Version 1)
Quarter: 2016Q1

REPORT INFORMATION
  Report Type: Spontaneous
  Country: US (occurrence: None)
  Receive Date: 20160324
  Receipt Date: 20160324
  Transmission Date: 20160526
  Serious: Yes (Hospitalization)
  Sender: FDA-Public Use
  Company Number: None

PATIENT
  Age: 93 Year
  Sex: Male
  Weight: 61.4 kg

DRUGS (17)
  1. CENTRUM SILVER [Concomitant]
     Active Substance: MINERALS\VITAMINS
  2. SILODOSIN [Concomitant]
     Active Substance: SILODOSIN
  3. ACETAMINOPHEN. [Concomitant]
     Active Substance: ACETAMINOPHEN
  4. DIGOXIN. [Suspect]
     Active Substance: DIGOXIN
     Indication: ATRIAL FIBRILLATION
     Dosage: CHRONIC
     Route: 048
  5. DIGOXIN. [Suspect]
     Active Substance: DIGOXIN
     Indication: CARDIAC FAILURE CONGESTIVE
     Dosage: CHRONIC
     Route: 048
  6. CALCIUM 600 + D3 [Concomitant]
  7. ALBUTEROL. [Concomitant]
     Active Substance: ALBUTEROL
  8. CARVEDILOL. [Concomitant]
     Active Substance: CARVEDILOL
  9. POTASSIUM CHLORIDE SA [Concomitant]
  10. BUDESONIDE. [Concomitant]
     Active Substance: BUDESONIDE
  11. DOCUSATE [Concomitant]
     Active Substance: DOCUSATE
  12. METOLAZONE. [Concomitant]
     Active Substance: METOLAZONE
  13. RIVAROXABAN [Concomitant]
     Active Substance: RIVAROXABAN
  14. ASCORBIC ACID. [Concomitant]
     Active Substance: ASCORBIC ACID
  15. DUTASERIDE [Concomitant]
  16. FERROUS SULFATE [Concomitant]
     Active Substance: FERROUS SULFATE\FERROUS SULFATE, DRIED
  17. FUROSEMIDE. [Concomitant]
     Active Substance: FUROSEMIDE

REACTIONS (2)
  - Bradycardia [None]
  - Acute kidney injury [None]

NARRATIVE: CASE EVENT DATE: 20160318
